FAERS Safety Report 7550342-6 (Version None)
Quarter: 2011Q2

REPORT INFORMATION
  Report Type: 
  Country: None (occurrence: None)
  Receive Date: 20110615
  Receipt Date: 20101019
  Transmission Date: 20111010
  Serious: No
  Sender: FDA-Public Use
  Company Number: A0887607A

PATIENT
  Age: 43 Year
  Sex: Female

DRUGS (3)
  1. BIRTH CONTROL [Concomitant]
     Indication: PREMENSTRUAL SYNDROME
     Route: 048
  2. PARNATE [Suspect]
     Indication: MAJOR DEPRESSION
     Dosage: 70MG PER DAY
     Route: 048
  3. FISH OIL [Concomitant]

REACTIONS (5)
  - BONE PAIN [None]
  - NEURALGIA [None]
  - ALOPECIA [None]
  - PARAESTHESIA [None]
  - PRURITUS [None]
